FAERS Safety Report 7929512-0 (Version None)
Quarter: 2011Q4

REPORT INFORMATION
  Report Type: 
  Country: None (occurrence: None)
  Receive Date: 20111121
  Receipt Date: 20111109
  Transmission Date: 20120403
  Serious: Yes (Death)
  Sender: FDA-Public Use
  Company Number: US-ELI_LILLY_AND_COMPANY-US201109007780

PATIENT
  Sex: Male

DRUGS (3)
  1. SYMBYAX [Suspect]
     Indication: AFFECTIVE DISORDER
     Dosage: 3/25 MG, EVERY BEDTIME
     Dates: start: 20090318
  2. VYVANSE [Concomitant]
     Indication: AFFECTIVE DISORDER
     Dosage: 30 MG, QD
     Dates: start: 20081209
  3. LEXAPRO [Concomitant]
     Indication: AFFECTIVE DISORDER
     Dosage: 10 MG, 1/2 EACH MORNING
     Dates: start: 20090203, end: 20090318

REACTIONS (2)
  - ASPHYXIA [None]
  - OFF LABEL USE [None]
